FAERS Safety Report 19635441 (Version 6)
Quarter: 2024Q4

REPORT INFORMATION
  Report Type: Spontaneous
  Country: CA (occurrence: CA)
  Receive Date: 20210729
  Receipt Date: 20241209
  Transmission Date: 20250114
  Serious: Yes (Death)
  Sender: B BRAUN
  Company Number: CA-B.BRAUN MEDICAL INC.-2114426

PATIENT
  Age: 80 Year
  Sex: Male
  Weight: 69 kg

DRUGS (104)
  1. DEXTROSE [Suspect]
     Active Substance: DEXTROSE MONOHYDRATE
     Indication: Nutritional supplementation
  2. ACETAMINOPHEN [Suspect]
     Active Substance: ACETAMINOPHEN
  3. THEOPHYLLINE [Suspect]
     Active Substance: THEOPHYLLINE
  4. ACETAMINOPHEN\CHLORPHENIRAMINE\DEXTROMETHORPHAN\PSEUDOEPHEDRINE HYDROC [Suspect]
     Active Substance: ACETAMINOPHEN\CHLORPHENIRAMINE\DEXTROMETHORPHAN\PSEUDOEPHEDRINE HYDROCHLORIDE
  5. HAMAMELIS VIRGINIANA TOP WATER\PHENYLEPHRINE HYDROCHLORIDE [Suspect]
     Active Substance: HAMAMELIS VIRGINIANA TOP WATER\PHENYLEPHRINE HYDROCHLORIDE
  6. POLYETHYLENE GLYCOL 4000 [Suspect]
     Active Substance: POLYETHYLENE GLYCOL 4000
  7. HERBALS [Suspect]
     Active Substance: HERBALS
  8. OTRIVIN [Suspect]
     Active Substance: XYLOMETAZOLINE
  9. OSELTAMIVIR PHOSPHATE [Suspect]
     Active Substance: OSELTAMIVIR PHOSPHATE
  10. MAGNESIUM OXIDE [Suspect]
     Active Substance: MAGNESIUM OXIDE
  11. MAGNESIUM HYDROXIDE [Suspect]
     Active Substance: MAGNESIUM HYDROXIDE
  12. LIDOCAINE [Suspect]
     Active Substance: LIDOCAINE
  13. UNSPECIFIED INGREDIENT [Suspect]
     Active Substance: UNSPECIFIED INGREDIENT
  14. FURAZOLIDONE [Suspect]
     Active Substance: FURAZOLIDONE
  15. DEXLANSOPRAZOLE [Suspect]
     Active Substance: DEXLANSOPRAZOLE
  16. DARBEPOETIN ALFA [Suspect]
     Active Substance: DARBEPOETIN ALFA
  17. .ALPHA.-TOCOPHEROL, D- [Suspect]
     Active Substance: .ALPHA.-TOCOPHEROL, D-
  18. CLIOQUINOL\HYDROCORTISONE [Suspect]
     Active Substance: CLIOQUINOL\HYDROCORTISONE
  19. HERBALS [Suspect]
     Active Substance: HERBALS
  20. DIETARY SUPPLEMENT [Suspect]
     Active Substance: DIETARY SUPPLEMENT
  21. BUFEXAMAC\LIDOCAINE HYDROCHLORIDE [Suspect]
     Active Substance: BUFEXAMAC\LIDOCAINE HYDROCHLORIDE
  22. BISMUTH [Suspect]
     Active Substance: BISMUTH
  23. ALUMINUM HYDROXIDE [Suspect]
     Active Substance: ALUMINUM HYDROXIDE
  24. ALLANTOIN [Suspect]
     Active Substance: ALLANTOIN
  25. BETA CAROTENE [Suspect]
     Active Substance: BETA CAROTENE
  26. RIBOFLAVIN 5^-PHOSPHATE SODIUM [Suspect]
     Active Substance: RIBOFLAVIN 5^-PHOSPHATE SODIUM
  27. DISODIUM HYDROGEN CITRATE [Suspect]
     Active Substance: DISODIUM HYDROGEN CITRATE
  28. XANTOFYL PALMITATE [Suspect]
     Active Substance: XANTOFYL PALMITATE
  29. VITAMIN K1 [Suspect]
     Active Substance: PHYTONADIONE
  30. VITAMIN E [Suspect]
     Active Substance: .ALPHA.-TOCOPHEROL
  31. VITAMIN C [Suspect]
     Active Substance: ASCORBIC ACID
  32. VILANTEROL TRIFENATATE [Suspect]
     Active Substance: VILANTEROL TRIFENATATE
  33. SODIUM CHLORIDE [Suspect]
     Active Substance: SODIUM CHLORIDE
  34. PREVACID [Suspect]
     Active Substance: LANSOPRAZOLE
  35. POLYETHYLENE GLYCOL [Suspect]
     Active Substance: POLYETHYLENE GLYCOL
  36. HERBALS\PAULLINIA CUPANA SEED [Suspect]
     Active Substance: HERBALS\PAULLINIA CUPANA SEED
  37. OTRIVIN [Suspect]
     Active Substance: XYLOMETAZOLINE
  38. MALTOSE [Suspect]
     Active Substance: MALTOSE
  39. MAGNESIUM HYDROXIDE [Suspect]
     Active Substance: MAGNESIUM HYDROXIDE
  40. IPRATROPIUM [Suspect]
     Active Substance: IPRATROPIUM
  41. UNSPECIFIED INGREDIENT [Suspect]
     Active Substance: UNSPECIFIED INGREDIENT
  42. HEPARIN CALCIUM [Suspect]
     Active Substance: HEPARIN CALCIUM
  43. FURAZOLIDONE [Suspect]
     Active Substance: FURAZOLIDONE
  44. FLUTICASONE FUROATE\VILANTEROL TRIFENATATE [Suspect]
     Active Substance: FLUTICASONE FUROATE\VILANTEROL TRIFENATATE
  45. PSYLLIUM HUSK [Suspect]
     Active Substance: PSYLLIUM HUSK
  46. FENOTEROL [Suspect]
     Active Substance: FENOTEROL
  47. DIPYRONE [Suspect]
     Active Substance: DIPYRONE
  48. DEXTROSE AND SODIUM CHLORIDE [Suspect]
     Active Substance: DEXTROSE MONOHYDRATE\SODIUM CHLORIDE
  49. DEXILANT [Suspect]
     Active Substance: DEXLANSOPRAZOLE
  50. DALTEPARIN SODIUM [Suspect]
     Active Substance: DALTEPARIN SODIUM
  51. CHLORAMPHENICOL\HYDROCORTISONE ACETATE\METRONIDAZOLE\NYSTATIN [Suspect]
     Active Substance: CHLORAMPHENICOL\HYDROCORTISONE ACETATE\METRONIDAZOLE\NYSTATIN
  52. CARBOHYDRATES [Suspect]
     Active Substance: CARBOHYDRATES
  53. CALCIUM CHLORIDE\DEXTROSE\POTASSIUM CHLORIDE\SODIUM CHLORIDE [Suspect]
     Active Substance: CALCIUM CHLORIDE\DEXTROSE\POTASSIUM CHLORIDE\SODIUM CHLORIDE
  54. BUFEXAMAC\LIDOCAINE HYDROCHLORIDE [Suspect]
     Active Substance: BUFEXAMAC\LIDOCAINE HYDROCHLORIDE
  55. BISMUTH\MAGNESIUM CARBONATE\SODIUM BICARBONATE [Suspect]
     Active Substance: BISMUTH\MAGNESIUM CARBONATE\SODIUM BICARBONATE
  56. BISACODYL [Suspect]
     Active Substance: BISACODYL
  57. ALUMINUM HYDROXIDE [Suspect]
     Active Substance: ALUMINUM HYDROXIDE
  58. THEOPHYLLINE [Suspect]
     Active Substance: THEOPHYLLINE
  59. LIDOCAINE HYDROCHLORIDE [Suspect]
     Active Substance: LIDOCAINE HYDROCHLORIDE
  60. WARFARIN [Suspect]
     Active Substance: WARFARIN
  61. VILANTEROL TRIFENATATE [Suspect]
     Active Substance: VILANTEROL TRIFENATATE
  62. VASOPRESSIN [Suspect]
     Active Substance: VASOPRESSIN
  63. UMECLIDINIUM BROMIDE\VILANTEROL TRIFENATATE [Suspect]
     Active Substance: UMECLIDINIUM BROMIDE\VILANTEROL TRIFENATATE
  64. UMECLIDINIUM BROMIDE [Suspect]
     Active Substance: UMECLIDINIUM BROMIDE
  65. SODIUM PICOSULFATE [Suspect]
     Active Substance: SODIUM PICOSULFATE
  66. SODIUM PHOSPHATE, MONOBASIC [Suspect]
     Active Substance: SODIUM PHOSPHATE, MONOBASIC
  67. SODIUM FERRIC GLUCONATE COMPLEX [Suspect]
     Active Substance: SODIUM FERRIC GLUCONATE COMPLEX
  68. TRISODIUM CITRATE DIHYDRATE [Suspect]
     Active Substance: TRISODIUM CITRATE DIHYDRATE
  69. SODIUM CITRATE [Suspect]
     Active Substance: SODIUM CITRATE
  70. SIMVASTATIN [Suspect]
     Active Substance: SIMVASTATIN
  71. ALBUTEROL [Suspect]
     Active Substance: ALBUTEROL
  72. PYRIDOXINE HYDROCHLORIDE [Suspect]
     Active Substance: PYRIDOXINE HYDROCHLORIDE
  73. PREVACID [Suspect]
     Active Substance: LANSOPRAZOLE
  74. POTASSIUM CHLORIDE [Suspect]
     Active Substance: POTASSIUM CHLORIDE
  75. PHYTONADIONE [Suspect]
     Active Substance: PHYTONADIONE
  76. ONDANSETRON [Suspect]
     Active Substance: ONDANSETRON
  77. NOREPINEPHRINE BITARTRATE [Suspect]
     Active Substance: NOREPINEPHRINE BITARTRATE
  78. SODIUM PHOSPHATE, MONOBASIC [Suspect]
     Active Substance: SODIUM PHOSPHATE, MONOBASIC
  79. METRONIDAZOLE [Suspect]
     Active Substance: METRONIDAZOLE
  80. MELATONIN [Suspect]
     Active Substance: MELATONIN
  81. ASCORBIC ACID\PEG-3350\POTASSIUM CHLORIDE\SODIUM (ASCORBATE/CHLORIDE/S [Suspect]
     Active Substance: ASCORBIC ACID\POLYETHYLENE GLYCOL 3350\POTASSIUM CHLORIDE\SODIUM ASCORBATE\SODIUM CHLORIDE\SODIUM SU
  82. POLYETHYLENE GLYCOL 3350 [Suspect]
     Active Substance: POLYETHYLENE GLYCOL 3350
  83. LANTHANUM CARBONATE [Suspect]
     Active Substance: LANTHANUM CARBONATE
  84. LANSOPRAZOLE [Suspect]
     Active Substance: LANSOPRAZOLE
  85. IPRATROPIUM [Suspect]
     Active Substance: IPRATROPIUM
  86. INSULIN DEGLUDEC [Suspect]
     Active Substance: INSULIN DEGLUDEC
  87. INSULIN ASPART PROTAMINE AND INSULIN ASPART [Suspect]
     Active Substance: INSULIN ASPART
  88. HYDROMORPHONE HYDROCHLORIDE [Suspect]
     Active Substance: HYDROMORPHONE HYDROCHLORIDE
  89. HEPARIN SODIUM [Suspect]
     Active Substance: HEPARIN SODIUM
  90. GABAPENTIN [Suspect]
     Active Substance: GABAPENTIN
  91. FLUTICASONE FUROATE [Suspect]
     Active Substance: FLUTICASONE FUROATE
  92. DOBUTAMINE HYDROCHLORIDE [Suspect]
     Active Substance: DOBUTAMINE HYDROCHLORIDE
  93. DISTIGMINE BROMIDE [Suspect]
     Active Substance: DISTIGMINE BROMIDE
  94. DALTEPARIN SODIUM [Suspect]
     Active Substance: DALTEPARIN SODIUM
  95. CEFTRIAXONE SODIUM [Suspect]
     Active Substance: CEFTRIAXONE SODIUM
  96. CALCITRIOL [Suspect]
     Active Substance: CALCITRIOL
  97. BISACODYL [Suspect]
     Active Substance: BISACODYL
  98. DIETARY SUPPLEMENT [Suspect]
     Active Substance: DIETARY SUPPLEMENT
  99. BETAMETHASONE [Suspect]
     Active Substance: BETAMETHASONE
  100. DIETARY SUPPLEMENT\HERBALS [Suspect]
     Active Substance: DIETARY SUPPLEMENT\HERBALS
  101. ATROVENT [Suspect]
     Active Substance: IPRATROPIUM BROMIDE
  102. ARANESP [Suspect]
     Active Substance: DARBEPOETIN ALFA
  103. AMIODARONE HYDROCHLORIDE [Suspect]
     Active Substance: AMIODARONE HYDROCHLORIDE
  104. ALLOPURINOL [Suspect]
     Active Substance: ALLOPURINOL

REACTIONS (73)
  - Abdominal distension [Unknown]
  - Thrombosis [Unknown]
  - Swelling [Unknown]
  - Somnolence [Unknown]
  - Sleep disorder therapy [Unknown]
  - Pulmonary embolism [Unknown]
  - Product use in unapproved indication [Unknown]
  - Neuralgia [Unknown]
  - Myasthenia gravis [Unknown]
  - Iron deficiency [Unknown]
  - Intentional product misuse [Unknown]
  - Inappropriate schedule of product administration [Unknown]
  - Hypophosphataemia [Unknown]
  - Dyspnoea [Unknown]
  - Dry mouth [Unknown]
  - Drug therapy [Unknown]
  - Drug intolerance [Unknown]
  - Drug hypersensitivity [Unknown]
  - Diabetes mellitus [Unknown]
  - Death [Unknown]
  - Condition aggravated [Unknown]
  - Blood uric acid increased [Unknown]
  - Blood phosphorus increased [Unknown]
  - Blood cholesterol increased [Unknown]
  - Bacterial infection [Unknown]
  - Analgesic therapy [Unknown]
  - Anaemia [Unknown]
  - Ulcer [Unknown]
  - Hyperlipidaemia [Unknown]
  - Gout [Unknown]
  - End stage renal disease [Unknown]
  - Drug ineffective [Unknown]
  - Chronic obstructive pulmonary disease [Unknown]
  - Aortic stenosis [Unknown]
  - Activated partial thromboplastin time prolonged [Unknown]
  - Thrombosis [Unknown]
  - Swelling [Unknown]
  - Somnolence [Unknown]
  - Sleep disorder [Unknown]
  - Pulmonary embolism [Unknown]
  - Neuralgia [Unknown]
  - Myasthenia gravis [Unknown]
  - Iron deficiency [Unknown]
  - Intentional product misuse [Unknown]
  - Incorrect route of product administration [Unknown]
  - Hyponatraemia [Unknown]
  - Hyperphosphataemia [Unknown]
  - Dry mouth [Unknown]
  - Drug intolerance [Unknown]
  - Drug hypersensitivity [Unknown]
  - Diabetes mellitus [Unknown]
  - Death [Unknown]
  - Condition aggravated [Unknown]
  - Blood uric acid increased [Unknown]
  - Blood phosphorus increased [Unknown]
  - Blood cholesterol increased [Unknown]
  - Bacterial infection [Unknown]
  - Anaemia [Unknown]
  - Ventricular fibrillation [Fatal]
  - Vomiting [Unknown]
  - Stress [Unknown]
  - Sepsis [Unknown]
  - Off label use [Unknown]
  - Nausea [Unknown]
  - Multiple organ dysfunction syndrome [Unknown]
  - Hyponatraemia [Unknown]
  - General physical health deterioration [Unknown]
  - Constipation [Unknown]
  - Cardiogenic shock [Unknown]
  - Ascites [Unknown]
  - Appendicolith [Unknown]
  - Appendicitis [Unknown]
  - Abdominal pain [Unknown]
